FAERS Safety Report 5492703-5 (Version None)
Quarter: 2007Q4

REPORT INFORMATION
  Report Type: 
  Country: None (occurrence: None)
  Receive Date: 20071019
  Receipt Date: 20071009
  Transmission Date: 20080405
  Serious: Yes (Other)
  Sender: FDA-Public Use
  Company Number: MEDI-0005971

PATIENT
  Sex: Female

DRUGS (8)
  1. SYNAGIS [Suspect]
     Indication: RESPIRATORY SYNCYTIAL VIRUS INFECTION
     Dosage: 1 IN 1 M
     Dates: start: 20070828, end: 20070828
  2. PHENOBARBITAL TAB [Concomitant]
  3. CAFFEINE CITRATE [Concomitant]
  4. CALCIFEROL (ERGOCALCIFEROL) [Concomitant]
  5. ALDACTONE [Concomitant]
  6. VIDAYLIN (ERGOCALCIFEROL, ASCORBIC ACID, THIAMINE, PYRIDOXINE, CYANOCO [Concomitant]
  7. FERRIMED (PYRIDOXINE HYDROCHLORIDE, CYANOCOBALAMIN, FERIC HYDROXIDE PO [Concomitant]
  8. MERONEM (MEROPENEM) [Concomitant]

REACTIONS (1)
  - APPLICATION SITE EXFOLIATION [None]
